FAERS Safety Report 11720621 (Version 4)
Quarter: 2016Q3

REPORT INFORMATION
  Report Type: Spontaneous
  Country: US (occurrence: US)
  Receive Date: 20151110
  Receipt Date: 20160721
  Transmission Date: 20161109
  Serious: Yes (Hospitalization)
  Sender: FDA-Public Use
  Company Number: US-ASTRAZENECA-2009SE13304

PATIENT
  Age: 45 Year
  Sex: Male
  Weight: 95.3 kg

DRUGS (37)
  1. CRESTOR [Suspect]
     Active Substance: ROSUVASTATIN CALCIUM
     Route: 048
     Dates: start: 200601, end: 200706
  2. LORAZEPAM. [Concomitant]
     Active Substance: LORAZEPAM
     Indication: ANXIETY
     Route: 048
     Dates: start: 20021226
  3. LISINOPRIL. [Concomitant]
     Active Substance: LISINOPRIL
  4. HUMALOG [Concomitant]
     Active Substance: INSULIN LISPRO
  5. PEPCID [Concomitant]
     Active Substance: FAMOTIDINE
     Dates: start: 20110620
  6. BUPROPION HCL [Concomitant]
     Active Substance: BUPROPION HYDROCHLORIDE
     Dates: start: 20150508
  7. LISINOPRIL-HYDROCHLOROTHIAZIDE [Concomitant]
     Active Substance: HYDROCHLOROTHIAZIDE\LISINOPRIL
     Dosage: 20-12.5 MG, DAILY
     Dates: start: 20110208
  8. CRESTOR [Suspect]
     Active Substance: ROSUVASTATIN CALCIUM
     Route: 048
     Dates: start: 2004
  9. ATORVASTATIN [Concomitant]
     Active Substance: ATORVASTATIN
     Dates: start: 200401, end: 200512
  10. METFORMIN HCL [Concomitant]
     Active Substance: METFORMIN HYDROCHLORIDE
     Dates: start: 200401, end: 201212
  11. PLAVIX [Concomitant]
     Active Substance: CLOPIDOGREL BISULFATE
  12. SPIRIVA [Concomitant]
     Active Substance: TIOTROPIUM BROMIDE MONOHYDRATE
     Dates: start: 20150508
  13. NOVOLOG [Concomitant]
     Active Substance: INSULIN ASPART
     Dates: start: 20120210
  14. COREG [Concomitant]
     Active Substance: CARVEDILOL
     Dates: start: 20120618
  15. ZITHROMAX [Concomitant]
     Active Substance: AZITHROMYCIN DIHYDRATE
     Dosage: 250.0MG UNKNOWN
     Dates: start: 20110307
  16. ALBUTEROL MDD [Concomitant]
     Indication: ASTHMA
     Dosage: 2 PUFF ONCE A WEEK
     Dates: start: 1968
  17. TAMSULOSIN HCL [Concomitant]
     Active Substance: TAMSULOSIN
     Dates: start: 20110819
  18. COZAAR [Concomitant]
     Active Substance: LOSARTAN POTASSIUM
     Dates: start: 200401, end: 201212
  19. NITROSTAT [Concomitant]
     Active Substance: NITROGLYCERIN
     Dosage: 0.4MG UNKNOWN
     Route: 060
     Dates: start: 20141210
  20. CRESTOR [Suspect]
     Active Substance: ROSUVASTATIN CALCIUM
     Route: 048
     Dates: start: 2009
  21. ACETAMINOPHEN/TYLENOL [Concomitant]
     Indication: HEADACHE
     Route: 048
     Dates: start: 20021208
  22. LANTUS [Concomitant]
     Active Substance: INSULIN GLARGINE
     Dosage: 15 UNITS IN MORNING AND 33 UNITS IN THE EVENING ONCE EVERY NIGHT
     Dates: start: 20120210
  23. ZETIA [Concomitant]
     Active Substance: EZETIMIBE
     Dates: start: 20141210
  24. CRESTOR [Suspect]
     Active Substance: ROSUVASTATIN CALCIUM
     Route: 048
     Dates: start: 20110208
  25. ZOCOR [Concomitant]
     Active Substance: SIMVASTATIN
  26. PAROXETINE HCL [Concomitant]
     Active Substance: PAROXETINE HYDROCHLORIDE
     Dates: start: 20111020
  27. SYMBICORT [Concomitant]
     Active Substance: BUDESONIDE\FORMOTEROL FUMARATE DIHYDRATE
     Dosage: 80-4.5 MCG
     Dates: start: 20150207
  28. LORATADINE. [Concomitant]
     Active Substance: LORATADINE
     Dates: start: 20110620
  29. INVOKANA [Concomitant]
     Active Substance: CANAGLIFLOZIN
     Dates: start: 20151118
  30. SEROQUEL [Suspect]
     Active Substance: QUETIAPINE FUMARATE
     Route: 048
  31. RISPERDAL [Concomitant]
     Active Substance: RISPERIDONE
     Indication: SCHIZOPHRENIA
     Dosage: 1.5 - 3 MG
     Route: 048
     Dates: start: 1997
  32. EFFIENT [Concomitant]
     Active Substance: PRASUGREL HYDROCHLORIDE
     Dates: start: 20150508
  33. GUAIFENESIN. [Concomitant]
     Active Substance: GUAIFENESIN
     Dosage: 100 MG/5ML, 10 ML, FOUR TIMES A DAY
     Dates: start: 20110307
  34. ZYPREXA [Concomitant]
     Active Substance: OLANZAPINE
     Indication: SCHIZOPHRENIA
     Dates: start: 20001019
  35. NATEGLINIDE. [Concomitant]
     Active Substance: NATEGLINIDE
  36. ACTOS [Concomitant]
     Active Substance: PIOGLITAZONE HYDROCHLORIDE
     Dates: start: 20110620
  37. LOVAZA [Concomitant]
     Active Substance: OMEGA-3-ACID ETHYL ESTERS
     Dates: start: 20120204

REACTIONS (9)
  - Essential hypertension [Not Recovered/Not Resolved]
  - Type 1 diabetes mellitus [Unknown]
  - Diabetic vascular disorder [Unknown]
  - Myocardial infarction [Unknown]
  - Type 2 diabetes mellitus [Not Recovered/Not Resolved]
  - Cardiovascular disorder [Unknown]
  - Renal disorder [Unknown]
  - Liver disorder [Unknown]
  - Angina pectoris [Unknown]

NARRATIVE: CASE EVENT DATE: 2004
